FAERS Safety Report 18164779 (Version 2)
Quarter: 2020Q4

REPORT INFORMATION
  Report Type: Spontaneous
  Country: US (occurrence: US)
  Receive Date: 20200818
  Receipt Date: 20201210
  Transmission Date: 20210113
  Serious: Yes (Hospitalization)
  Sender: FDA-Public Use
  Company Number: US-ABBVIE-20K-163-3524916-00

PATIENT
  Age: 64 Year
  Sex: Female
  Weight: 46.76 kg

DRUGS (3)
  1. CREON [Suspect]
     Active Substance: PANCRELIPASE AMYLASE\PANCRELIPASE LIPASE\PANCRELIPASE PROTEASE
     Indication: PRODUCT USED FOR UNKNOWN INDICATION
     Dosage: 2 CAPSULES PER MEAL
     Route: 048
     Dates: start: 2004, end: 202010
  2. CREON [Suspect]
     Active Substance: PANCRELIPASE AMYLASE\PANCRELIPASE LIPASE\PANCRELIPASE PROTEASE
     Dosage: 1 CAPSULES PER MEAL
     Route: 048
     Dates: start: 202010
  3. INSULIN [Concomitant]
     Active Substance: INSULIN NOS
     Indication: TYPE 3 DIABETES MELLITUS

REACTIONS (13)
  - Dehydration [Recovering/Resolving]
  - Small intestinal stenosis [Not Recovered/Not Resolved]
  - Weight decreased [Not Recovered/Not Resolved]
  - Amylase decreased [Recovered/Resolved]
  - Vascular device infection [Recovered/Resolved]
  - Desmoid tumour [Not Recovered/Not Resolved]
  - Vascular device infection [Recovered/Resolved]
  - Lipase decreased [Recovered/Resolved]
  - Discomfort [Not Recovered/Not Resolved]
  - Pain [Not Recovered/Not Resolved]
  - Carcinoid tumour of the small bowel [Recovered/Resolved]
  - Hepatitis [Recovering/Resolving]
  - Liver function test increased [Not Recovered/Not Resolved]

NARRATIVE: CASE EVENT DATE: 2011
